FAERS Safety Report 11904447 (Version 1)
Quarter: 2016Q1

REPORT INFORMATION
  Report Type: Spontaneous
  Country: US (occurrence: US)
  Receive Date: 20160108
  Receipt Date: 20160108
  Transmission Date: 20160526
  Serious: No
  Sender: FDA-Public Use
  Company Number: US-ROCHE-1590834

PATIENT
  Age: 53 Year
  Sex: Female

DRUGS (12)
  1. METHOTREXATE [Concomitant]
     Active Substance: METHOTREXATE
  2. ASTEPRO [Concomitant]
     Active Substance: AZELASTINE HYDROCHLORIDE
  3. LAMICTAL [Concomitant]
     Active Substance: LAMOTRIGINE
  4. RITUXAN [Suspect]
     Active Substance: RITUXIMAB
     Indication: RHEUMATOID ARTHRITIS
     Dosage: RECIEVES DOSE ON DAY 1 + DAY15 OF EACH 24 WEEK CYCLE
     Route: 042
     Dates: start: 201410, end: 20150424
  5. ALPRAZOLAM. [Concomitant]
     Active Substance: ALPRAZOLAM
  6. ARMOUR THYROID [Concomitant]
     Active Substance: THYROID, PORCINE
  7. RETIN-A [Concomitant]
     Active Substance: TRETINOIN
  8. XELJANZ [Concomitant]
     Active Substance: TOFACITINIB CITRATE
  9. FOLIC ACID. [Concomitant]
     Active Substance: FOLIC ACID
  10. ACTHAR [Concomitant]
     Active Substance: CORTICOTROPIN
  11. FLONASE (UNITED STATES) [Concomitant]
  12. VITAMIN D3 [Concomitant]
     Active Substance: CHOLECALCIFEROL

REACTIONS (1)
  - Therapeutic product ineffective [Unknown]
